FAERS Safety Report 12162195 (Version 1)
Quarter: 2016Q1

REPORT INFORMATION
  Report Type: Spontaneous
  Country: US (occurrence: None)
  Receive Date: 20160308
  Receipt Date: 20160308
  Transmission Date: 20160526
  Serious: Yes (Hospitalization)
  Sender: FDA-Public Use
  Company Number: None

PATIENT
  Age: 74 Year
  Sex: Male
  Weight: 103.7 kg

DRUGS (11)
  1. METROCREAM [Concomitant]
     Active Substance: METRONIDAZOLE
  2. EFFEXOR [Concomitant]
     Active Substance: VENLAFAXINE HYDROCHLORIDE
  3. VITAMIN D2 [Concomitant]
     Active Substance: ERGOCALCIFEROL
  4. XALATAN [Concomitant]
     Active Substance: LATANOPROST
  5. BETAPACE [Concomitant]
     Active Substance: SOTALOL HYDROCHLORIDE
  6. XARELTO [Suspect]
     Active Substance: RIVAROXABAN
     Indication: ATRIAL FIBRILLATION
     Dosage: CHRONIC
     Route: 048
  7. PRILOSEC [Concomitant]
     Active Substance: OMEPRAZOLE MAGNESIUM
  8. TIMOLOL. [Concomitant]
     Active Substance: TIMOLOL
  9. FISH OIL [Concomitant]
     Active Substance: FISH OIL
  10. NIFEREX [Concomitant]
     Active Substance: IRON\POLYSACCHARIDES
  11. LIPITOR [Concomitant]
     Active Substance: ATORVASTATIN CALCIUM

REACTIONS (3)
  - Lower gastrointestinal haemorrhage [None]
  - Anaemia [None]
  - Diverticulum intestinal haemorrhagic [None]

NARRATIVE: CASE EVENT DATE: 20151113
